FAERS Safety Report 4852792-5 (Version None)
Quarter: 2005Q4

REPORT INFORMATION
  Report Type: 
  Country: None (occurrence: None)
  Receive Date: 20051212
  Receipt Date: 20051212
  Transmission Date: 20060501
  Serious: Yes (Hospitalization)
  Sender: FDA-Public Use
  Company Number: None

PATIENT
  Sex: Female
  Weight: 65.7716 kg

DRUGS (2)
  1. LEXAPRO [Suspect]
     Indication: DEPRESSION
     Dosage: 1 TAB  1 TIME PER DAY PO
     Route: 048
     Dates: start: 20050528, end: 20051209
  2. ULTRACET [Suspect]
     Indication: SHOULDER PAIN
     Dosage: 2 TABS  3 TIMES PER DAY PO
     Route: 048
     Dates: start: 20051202, end: 20051205

REACTIONS (2)
  - DRUG INTERACTION [None]
  - MEDICATION ERROR [None]
